FAERS Safety Report 15974518 (Version 4)
Quarter: 2021Q1

REPORT INFORMATION
  Report Type: Report from Study
  Country: JP (occurrence: JP)
  Receive Date: 20190218
  Receipt Date: 20210128
  Transmission Date: 20210419
  Serious: Yes (Life-Threatening, Hospitalization, Other)
  Sender: FDA-Public Use
  Company Number: JP-GLAXOSMITHKLINE-JP2017JPN199483

PATIENT
  Sex: Male

DRUGS (15)
  1. RUPAFIN TABLETS [Concomitant]
     Dosage: UNK
     Dates: start: 20190614, end: 20200322
  2. DESCOVY [Concomitant]
     Active Substance: EMTRICITABINE\TENOFOVIR ALAFENAMIDE FUMARATE
     Indication: HIV INFECTION
     Dosage: 1 DF, 1D
     Dates: start: 20171001
  3. BAKTAR [Concomitant]
     Active Substance: SULFAMETHOXAZOLE\TRIMETHOPRIM
     Indication: PNEUMOCYSTIS JIROVECII PNEUMONIA
     Dosage: 3 DF, TID
     Dates: start: 20160604, end: 20160608
  4. TIVICAY [Suspect]
     Active Substance: DOLUTEGRAVIR SODIUM
     Indication: HIV INFECTION
     Dosage: 50 MG, 1D
     Route: 048
     Dates: start: 20171001
  5. PENTAMIDINE ISETIONATE [Concomitant]
     Active Substance: PENTAMIDINE ISETHIONATE
     Indication: PNEUMOCYSTIS JIROVECII PNEUMONIA
     Dosage: 150 MG, QD
     Dates: start: 20160616, end: 20160619
  6. BENAMBAX [Concomitant]
     Active Substance: PENTAMIDINE
     Indication: PNEUMOCYSTIS JIROVECII PNEUMONIA
     Dosage: 300 MG, QD
     Dates: start: 20160621, end: 20160621
  7. BENAMBAX [Concomitant]
     Active Substance: PENTAMIDINE
     Indication: ANTIFUNGAL PROPHYLAXIS
     Dosage: 300 MG, QD
     Dates: start: 20160623, end: 20160703
  8. GRANISETRON HYDROCHLORIDE INTRAVENOUS INFUSION BAG [Concomitant]
     Indication: PROPHYLAXIS
     Dosage: UNK
     Dates: start: 20191216, end: 20191216
  9. TELMISARTAN OD [Concomitant]
     Active Substance: TELMISARTAN
     Dosage: UNK
     Dates: start: 20180423
  10. AMLODIPINE [Concomitant]
     Active Substance: AMLODIPINE BESYLATE
     Indication: HYPERTENSION
     Dosage: 2.5 MG, QD
     Dates: end: 20180422
  11. ABACAVIRSULPHATE+DOLUTEGRAVIR+LAMIVUDINE [Suspect]
     Active Substance: ABACAVIR SULFATE\DOLUTEGRAVIR SODIUM\LAMIVUDINE
     Indication: HIV INFECTION
     Dosage: 1 DF, 1D
     Route: 048
     Dates: start: 20160711, end: 20170930
  12. GRANISETRON HYDROCHLORIDE INTRAVENOUS INFUSION BAG [Concomitant]
     Dosage: UNK
     Dates: start: 20200114, end: 20200114
  13. ATOVAQUONE. [Suspect]
     Active Substance: ATOVAQUONE
     Indication: PNEUMOCYSTIS JIROVECII PNEUMONIA
     Dosage: 750 MG, BID
     Route: 048
     Dates: start: 20160608, end: 20160610
  14. LANSOPRAZOLE. [Concomitant]
     Active Substance: LANSOPRAZOLE
     Indication: PROPHYLAXIS
     Dosage: 15 MG, QD
     Dates: start: 20160522, end: 20160608
  15. BENAMBAX [Concomitant]
     Active Substance: PENTAMIDINE
     Dosage: 300 MG, ONCE A MONTH
     Dates: start: 20160711, end: 20160718

REACTIONS (7)
  - Papule [Recovering/Resolving]
  - Therapeutic product effect incomplete [Unknown]
  - Hyperuricaemia [Not Recovered/Not Resolved]
  - Platelet count decreased [Recovered/Resolved]
  - Anal cancer [Recovered/Resolved]
  - Neutrophil count decreased [Recovered/Resolved]
  - Platelet count decreased [Recovering/Resolving]

NARRATIVE: CASE EVENT DATE: 20160608
